FAERS Safety Report 9276677 (Version 7)
Quarter: 2015Q2

REPORT INFORMATION
  Report Type: Spontaneous
  Country: US (occurrence: None)
  Receive Date: 20130501
  Receipt Date: 20150506
  Transmission Date: 20150821
  Serious: Yes (Other)
  Sender: FDA-Public Use
  Company Number: ADR-2013-00738

PATIENT
  Age: 55 Year
  Sex: Female

DRUGS (7)
  1. COMPOUNDED BACLOFEN INTRATHECAL [Concomitant]
     Active Substance: BACLOFEN
  2. LIORESAL [Suspect]
     Active Substance: BACLOFEN
     Indication: MUSCLE SPASTICITY
     Dosage: 240.1 MCG/DAY: SEE B5
  3. CLOMIPHENE [Concomitant]
     Active Substance: CLOMIPHENE
  4. MORPHINE [Suspect]
     Active Substance: MORPHINE
     Dosage: 1.201 MG/DAY; SEE B5
  5. CLONIDINE. [Concomitant]
     Active Substance: CLONIDINE
  6. NEURONTIN [Suspect]
     Active Substance: GABAPENTIN
  7. BUPICACAINE INTRATHECAL [Suspect]
     Active Substance: BUPIVACAINE

REACTIONS (45)
  - Seroma [None]
  - Change of bowel habit [None]
  - Burning sensation [None]
  - Paraesthesia [None]
  - Crying [None]
  - Fatigue [None]
  - No therapeutic response [None]
  - Hypertension [None]
  - Device malfunction [None]
  - Device connection issue [None]
  - Vomiting [None]
  - Joint swelling [None]
  - Intracranial hypotension [None]
  - Insomnia [None]
  - Hypoaesthesia [None]
  - Swelling [None]
  - Coccydynia [None]
  - Implant site extravasation [None]
  - Intracranial aneurysm [None]
  - Inadequate analgesia [None]
  - Medical device complication [None]
  - Peroneal nerve palsy [None]
  - Gait disturbance [None]
  - Memory impairment [None]
  - Pain in extremity [None]
  - Dysstasia [None]
  - Post procedural complication [None]
  - Thrombosis [None]
  - Neck pain [None]
  - Restlessness [None]
  - Psychomotor hyperactivity [None]
  - Pain [None]
  - Drug prescribing error [None]
  - Cerebrospinal fluid leakage [None]
  - Hypocalcaemia [None]
  - Weight increased [None]
  - Drug withdrawal syndrome [None]
  - Fibromyalgia [None]
  - Fall [None]
  - Rash [None]
  - Spinal pain [None]
  - Device leakage [None]
  - Surgery [None]
  - Peritonitis [None]
  - Peripheral swelling [None]
